FAERS Safety Report 8895693 (Version 1)
Quarter: 2012Q4

REPORT INFORMATION
  Report Type: Report from Study
  Country: DE (occurrence: DE)
  Receive Date: 20121108
  Receipt Date: 20121108
  Transmission Date: 20130627
  Serious: Yes (Hospitalization)
  Sender: FDA-Public Use
  Company Number: DE-TEVA-368401GER

PATIENT
  Age: 20 Year

DRUGS (8)
  1. DOXORUBICIN [Suspect]
     Indication: HODGKIN^S DISEASE
     Route: 042
  2. BLEOMYCIN [Suspect]
     Indication: HODGKIN^S DISEASE
     Route: 042
  3. ETOPOSIDE [Suspect]
     Indication: HODGKIN^S DISEASE
     Route: 042
  4. VINCRISTINE [Suspect]
     Indication: HODGKIN^S DISEASE
     Route: 042
  5. PREDNISONE [Suspect]
     Indication: HODGKIN^S DISEASE
     Route: 042
  6. PROCARBAZINE HYDROCHLORIDE [Suspect]
     Indication: HODGKIN^S DISEASE
     Route: 042
  7. CYCLOPHOSPHAMID [Suspect]
     Indication: HODGKIN^S DISEASE
     Route: 042
  8. RITUXIMAB [Suspect]
     Indication: HODGKIN^S DISEASE
     Route: 042

REACTIONS (3)
  - Febrile neutropenia [Recovered/Resolved]
  - H1N1 influenza [Recovered/Resolved]
  - Pneumonia [Recovered/Resolved]
